FAERS Safety Report 5129485-2 (Version None)
Quarter: 2006Q4

REPORT INFORMATION
  Report Type: 
  Country: None (occurrence: None)
  Receive Date: 20061018
  Receipt Date: 20060328
  Transmission Date: 20070319
  Serious: No
  Sender: FDA-Public Use
  Company Number: US-BAYER-200612108BWH

PATIENT
  Age: 69 Year
  Sex: Male
  Weight: 96 kg

DRUGS (14)
  1. NEXAVAR [Suspect]
     Indication: RENAL CELL CARCINOMA STAGE UNSPECIFIED
     Dosage: TOTAL DAILY DOSE: 400 MG  UNIT DOSE: 200 MG
     Route: 048
     Dates: start: 20060701, end: 20060801
  2. NEXAVAR [Suspect]
     Dosage: TOTAL DAILY DOSE: 800 MG  UNIT DOSE: 200 MG
     Route: 048
     Dates: start: 20060601, end: 20060701
  3. NEXAVAR [Suspect]
     Dosage: TOTAL DAILY DOSE: 400 MG  UNIT DOSE: 200 MG
     Route: 048
     Dates: start: 20060501, end: 20060601
  4. NEXAVAR [Suspect]
     Dosage: TOTAL DAILY DOSE: 800 MG  UNIT DOSE: 200 MG
     Route: 048
     Dates: start: 20060209, end: 20060501
  5. NEXAVAR [Suspect]
     Dosage: TOTAL DAILY DOSE: 800 MG  UNIT DOSE: 200 MG
     Route: 048
     Dates: start: 20060801
  6. PROPAFENONE HCL [Concomitant]
     Dosage: TOTAL DAILY DOSE: 450 MG
     Route: 048
  7. AMLODIPINE BESYLATE [Concomitant]
     Dosage: TOTAL DAILY DOSE: 10 MG
     Route: 048
  8. METOPROLOL TARTRATE [Concomitant]
     Dosage: TOTAL DAILY DOSE: 50 MG
     Route: 048
  9. SUCRALFATE [Concomitant]
     Dosage: TOTAL DAILY DOSE: 4 G
     Route: 048
  10. COUMADIN [Concomitant]
  11. PERCOCET [Concomitant]
     Route: 048
  12. ZOLOFT [Concomitant]
     Dosage: TOTAL DAILY DOSE: 50 MG
     Route: 048
  13. DIFLUCAN [Concomitant]
     Dosage: TOTAL DAILY DOSE: 100 MG
     Route: 048
  14. ZOMETA [Concomitant]
     Route: 042

REACTIONS (13)
  - ALOPECIA [None]
  - BLISTER [None]
  - DECUBITUS ULCER [None]
  - DIARRHOEA [None]
  - DYSPHONIA [None]
  - EPISTAXIS [None]
  - FATIGUE [None]
  - FUNGAL INFECTION [None]
  - HYPOTHYROIDISM [None]
  - PALMAR-PLANTAR ERYTHRODYSAESTHESIA SYNDROME [None]
  - RASH [None]
  - SKIN TOXICITY [None]
  - VOCAL CORD DISORDER [None]
